FAERS Safety Report 13261654 (Version 2)
Quarter: 2017Q3

REPORT INFORMATION
  Report Type: Report from Study
  Country: GB (occurrence: GB)
  Receive Date: 20170222
  Receipt Date: 20170705
  Transmission Date: 20171127
  Serious: Yes (Death, Other)
  Sender: FDA-Public Use
  Company Number: GB-JNJFOC-20160615197

PATIENT
  Sex: Female
  Weight: 112 kg

DRUGS (2)
  1. STELARA [Suspect]
     Active Substance: USTEKINUMAB
     Indication: PSORIASIS
     Route: 058
     Dates: start: 20120709
  2. STELARA [Suspect]
     Active Substance: USTEKINUMAB
     Indication: PSORIASIS
     Route: 058
     Dates: start: 20120709

REACTIONS (4)
  - Respiratory tract infection [Fatal]
  - Inappropriate schedule of drug administration [Unknown]
  - Drug ineffective [Unknown]
  - Psoriasis [Recovering/Resolving]
